FAERS Safety Report 8172797-9 (Version None)
Quarter: 2012Q1

REPORT INFORMATION
  Report Type: 
  Country: None (occurrence: None)
  Receive Date: 20120229
  Receipt Date: 20120206
  Transmission Date: 20120608
  Serious: No
  Sender: FDA-Public Use
  Company Number: US-MYLANLABS-2011S1025762

PATIENT
  Age: 58 Year
  Sex: Female

DRUGS (3)
  1. PEPTO BISMOL /00139305/ [Concomitant]
     Indication: NAUSEA
  2. SUMATRIPTAN SUCCINATE [Suspect]
     Indication: HEADACHE
     Route: 048
  3. SUMATRIPTAN SUCCINATE [Suspect]
     Indication: MIGRAINE
     Route: 048

REACTIONS (2)
  - MIGRAINE [None]
  - DRUG INEFFECTIVE [None]
